FAERS Safety Report 18341538 (Version 1)
Quarter: 2020Q4

REPORT INFORMATION
  Report Type: Report from Study
  Country: EG (occurrence: EG)
  Receive Date: 20201004
  Receipt Date: 20201004
  Transmission Date: 20210113
  Serious: Yes (Other)
  Sender: FDA-Public Use
  Company Number: NVSC2020EG266645

PATIENT
  Age: 31 Year
  Sex: Female

DRUGS (2)
  1. GILENYA [Suspect]
     Active Substance: FINGOLIMOD HYDROCHLORIDE
     Dosage: 0.5 MG (ONCE, DAY AFTER DAY)
     Route: 048
  2. GILENYA [Suspect]
     Active Substance: FINGOLIMOD HYDROCHLORIDE
     Indication: MULTIPLE SCLEROSIS
     Dosage: 0.5 MG, QD
     Route: 048
     Dates: start: 20200222

REACTIONS (8)
  - Multiple sclerosis [Recovered/Resolved]
  - Vomiting [Unknown]
  - Movement disorder [Unknown]
  - Hepatic enzyme increased [Recovering/Resolving]
  - Immunodeficiency [Recovering/Resolving]
  - Musculoskeletal stiffness [Unknown]
  - Balance disorder [Unknown]
  - Inappropriate schedule of product administration [Unknown]

NARRATIVE: CASE EVENT DATE: 2020
